FAERS Safety Report 25407592 (Version 1)
Quarter: 2025Q2

REPORT INFORMATION
  Report Type: Spontaneous
  Country: US (occurrence: US)
  Receive Date: 20250606
  Receipt Date: 20250606
  Transmission Date: 20250716
  Serious: Yes (Hospitalization, Other)
  Sender: Steriscience PTE
  Company Number: US-STERISCIENCE B.V.-2025-ST-001097

PATIENT
  Age: 15 Year
  Sex: Male

DRUGS (14)
  1. METOPROLOL [Suspect]
     Active Substance: METOPROLOL
     Indication: Atrial flutter
     Route: 065
  2. DOFETILIDE [Suspect]
     Active Substance: DOFETILIDE
     Indication: Atrial flutter
     Route: 065
  3. DOFETILIDE [Suspect]
     Active Substance: DOFETILIDE
     Route: 065
  4. DOFETILIDE [Suspect]
     Active Substance: DOFETILIDE
     Dosage: 250 MICROGRAM, Q8H
     Route: 065
  5. ADENOSINE [Suspect]
     Active Substance: ADENOSINE
     Indication: Atrial flutter
     Route: 065
  6. AMIODARONE [Concomitant]
     Active Substance: AMIODARONE
     Indication: Atrial flutter
     Route: 048
  7. AMIODARONE [Concomitant]
     Active Substance: AMIODARONE
     Route: 065
  8. AMIODARONE [Concomitant]
     Active Substance: AMIODARONE
     Route: 065
  9. AMIODARONE [Concomitant]
     Active Substance: AMIODARONE
     Route: 065
  10. AMIODARONE [Concomitant]
     Active Substance: AMIODARONE
     Route: 048
  11. AMIODARONE [Concomitant]
     Active Substance: AMIODARONE
     Route: 048
  12. PROPRANOLOL [Concomitant]
     Active Substance: PROPRANOLOL HYDROCHLORIDE
     Indication: Hypertrophic cardiomyopathy
     Route: 065
  13. VERAPAMIL [Concomitant]
     Active Substance: VERAPAMIL HYDROCHLORIDE
     Indication: Hypertrophic cardiomyopathy
     Route: 065
  14. OMAVELOXOLONE [Concomitant]
     Active Substance: OMAVELOXOLONE
     Indication: Friedreich^s ataxia
     Route: 065

REACTIONS (3)
  - Cardiogenic shock [Unknown]
  - Arrhythmia [Unknown]
  - Drug ineffective for unapproved indication [Unknown]
